FAERS Safety Report 10496738 (Version 1)
Quarter: 2014Q4

REPORT INFORMATION
  Report Type: Spontaneous
  Country: US (occurrence: US)
  Receive Date: 20141006
  Receipt Date: 20141006
  Transmission Date: 20150528
  Serious: No
  Sender: FDA-Public Use
  Company Number: US-AMGEN-USASP2014074503

PATIENT
  Age: 19 Year
  Sex: Female

DRUGS (2)
  1. METHOTREXAAT                       /00113801/ [Concomitant]
     Dosage: 50 MG, QWK
     Route: 048
     Dates: start: 201101
  2. ENBREL [Suspect]
     Active Substance: ETANERCEPT
     Indication: JUVENILE IDIOPATHIC ARTHRITIS
     Dosage: 50 MG, QWK
     Route: 065
     Dates: start: 20121228

REACTIONS (13)
  - Diarrhoea [Not Recovered/Not Resolved]
  - Tremor [Not Recovered/Not Resolved]
  - Asthenia [Not Recovered/Not Resolved]
  - Muscular weakness [Not Recovered/Not Resolved]
  - Dyspnoea [Not Recovered/Not Resolved]
  - Dysphemia [Not Recovered/Not Resolved]
  - Feeling hot [Not Recovered/Not Resolved]
  - Dizziness [Not Recovered/Not Resolved]
  - Panic reaction [Not Recovered/Not Resolved]
  - Musculoskeletal discomfort [Not Recovered/Not Resolved]
  - Furuncle [Recovered/Resolved]
  - Tongue disorder [Not Recovered/Not Resolved]
  - Molluscum contagiosum [Recovered/Resolved]

NARRATIVE: CASE EVENT DATE: 201306
